FAERS Safety Report 9201366 (Version 2)
Quarter: 2013Q2

REPORT INFORMATION
  Report Type: Spontaneous
  Country: US (occurrence: US)
  Receive Date: 20130401
  Receipt Date: 20130603
  Transmission Date: 20140414
  Serious: Yes (Other)
  Sender: FDA-Public Use
  Company Number: US-JNJFOC-20130316514

PATIENT
  Age: 31 Year
  Sex: Male
  Weight: 106.6 kg

DRUGS (6)
  1. NUCYNTA IR [Suspect]
     Indication: PAIN
     Dosage: 100MG EVERY 6 HOURS
     Route: 048
  2. PHENTERMINE [Suspect]
     Indication: PRODUCT USED FOR UNKNOWN INDICATION
     Dosage: ONCE DAILY
     Route: 048
     Dates: start: 20130322
  3. KLONOPIN [Concomitant]
     Indication: ANXIETY
     Dosage: 1 MG ONCE DAILY
     Route: 048
     Dates: start: 2004
  4. AMBIEN [Concomitant]
     Indication: SLEEP DISORDER
     Dosage: 5 MG ONCE A DAY
     Route: 048
  5. PRAZOSIN [Concomitant]
     Indication: POST-TRAUMATIC STRESS DISORDER
     Route: 048
  6. PRAZOSIN [Concomitant]
     Indication: BLOOD PRESSURE
     Route: 048

REACTIONS (5)
  - Hallucination [Recovered/Resolved]
  - Dizziness [Recovered/Resolved]
  - Vomiting [Recovered/Resolved]
  - Feeling abnormal [Recovered/Resolved]
  - Disorientation [Recovered/Resolved]
